FAERS Safety Report 8922581 (Version 2)
Quarter: 2012Q4

REPORT INFORMATION
  Report Type: 
  Country: US (occurrence: US)
  Receive Date: 20121123
  Receipt Date: 20121206
  Transmission Date: 20130627
  Serious: No
  Sender: FDA-Public Use
  Company Number: US-PFIZER INC-2012291088

PATIENT
  Age: 55 Year
  Sex: Male

DRUGS (10)
  1. SUTENT [Suspect]
     Indication: RENAL CANCER
     Dosage: 50 mg, UNK
     Dates: start: 20121106
  2. ASPIRIN LOW DOSE [Concomitant]
     Dosage: UNK
  3. LISINOPRIL [Concomitant]
     Dosage: UNK
  4. COREG CR [Concomitant]
     Dosage: UNK
  5. ZANAFLEX [Concomitant]
     Dosage: UNK
  6. FENOFIBRATE [Concomitant]
     Dosage: UNK
  7. VITAMIN B12 [Concomitant]
     Dosage: UNK
  8. MAGNESIUM OXIDE [Concomitant]
     Dosage: UNK
  9. BENADRYL ALLERGY [Concomitant]
  10. PHENERGAN [Concomitant]
     Dosage: UNK

REACTIONS (2)
  - Nausea [Unknown]
  - Vomiting [Unknown]
